FAERS Safety Report 8042603-1 (Version None)
Quarter: 2012Q1

REPORT INFORMATION
  Report Type: 
  Country: None (occurrence: None)
  Receive Date: 20120112
  Receipt Date: 20120103
  Transmission Date: 20120608
  Serious: Yes (Hospitalization, Other)
  Sender: FDA-Public Use
  Company Number: FR-AMGEN-FRASP2012000965

PATIENT
  Age: 38 Year
  Sex: Female

DRUGS (2)
  1. METHOTREXATE [Concomitant]
     Indication: ANKYLOSING SPONDYLITIS
     Dosage: 10 MG, UNK
  2. ENBREL [Suspect]
     Indication: ANKYLOSING SPONDYLITIS
     Dosage: 50 MG, WEEKLY
     Route: 058
     Dates: start: 20090601

REACTIONS (7)
  - PYREXIA [None]
  - FATIGUE [None]
  - BACTERIAL DISEASE CARRIER [None]
  - UVEITIS [None]
  - MYALGIA [None]
  - ASTHENIA [None]
  - ERYTHEMA MULTIFORME [None]
